FAERS Safety Report 10288853 (Version 2)
Quarter: 2014Q3

REPORT INFORMATION
  Report Type: Spontaneous
  Country: US (occurrence: US)
  Receive Date: 20140709
  Receipt Date: 20140718
  Transmission Date: 20150326
  Serious: Yes (Other)
  Sender: FDA-Public Use
  Company Number: US-LUNDBECK-DKLU1101494

PATIENT
  Sex: Male

DRUGS (3)
  1. SABRIL [Suspect]
     Active Substance: VIGABATRIN
     Dates: start: 20140625
  2. SABRIL [Suspect]
     Active Substance: VIGABATRIN
     Indication: ELECTROENCEPHALOGRAM ABNORMAL
     Dates: start: 20140625
  3. SABRIL [Suspect]
     Active Substance: VIGABATRIN
     Indication: INFANTILE SPASMS
     Dates: start: 20121009, end: 20140624

REACTIONS (1)
  - Convulsion [Unknown]
